FAERS Safety Report 13488534 (Version 1)
Quarter: 2017Q2

REPORT INFORMATION
  Report Type: Spontaneous
  Country: US (occurrence: US)
  Receive Date: 20170426
  Receipt Date: 20170426
  Transmission Date: 20170830
  Serious: No
  Sender: FDA-Public Use
  Company Number: None

PATIENT
  Age: 68 Year
  Sex: Male

DRUGS (1)
  1. SAXAGLIPTIN [Suspect]
     Active Substance: SAXAGLIPTIN
     Indication: DIABETES MELLITUS
     Dates: start: 20160816, end: 20170201

REACTIONS (4)
  - Dehydration [None]
  - Diabetes mellitus [None]
  - Condition aggravated [None]
  - Pancreatitis [None]

NARRATIVE: CASE EVENT DATE: 20170201
